FAERS Safety Report 5838821-0 (Version None)
Quarter: 2008Q3

REPORT INFORMATION
  Report Type: 
  Country: None (occurrence: None)
  Receive Date: 20080808
  Receipt Date: 20080728
  Transmission Date: 20090109
  Serious: Yes (Disabling, Other)
  Sender: FDA-Public Use
  Company Number: FR-ELI_LILLY_AND_COMPANY-FR200807006205

PATIENT
  Sex: Female

DRUGS (7)
  1. CYMBALTA [Suspect]
     Indication: DEPRESSION
     Dosage: 60 MG, DAILY (1/D)
     Route: 048
     Dates: start: 20080501, end: 20080701
  2. TRANXENE [Concomitant]
     Indication: DEPRESSION
     Dosage: 60 MG, DAILY (1/D)
     Route: 048
  3. STILNOX [Concomitant]
     Indication: DEPRESSION
     Dosage: 15 MG, DAILY (1/D)
     Route: 048
  4. ASPIRIN [Concomitant]
     Dosage: 75 MG, DAILY (1/D)
     Route: 048
  5. SULFARLEM [Concomitant]
     Dosage: 6 D/F, DAILY (1/D)
     Route: 048
  6. BEFIZAL [Concomitant]
     Dosage: UNK, UNKNOWN
     Route: 048
  7. NEXIUM [Concomitant]
     Dosage: 20 MG, DAILY (1/D)
     Route: 048

REACTIONS (16)
  - AGGRESSION [None]
  - BLINDNESS UNILATERAL [None]
  - DEAFNESS UNILATERAL [None]
  - DIZZINESS [None]
  - ENURESIS [None]
  - EPISTAXIS [None]
  - ERYTHEMA [None]
  - HAEMATEMESIS [None]
  - HOT FLUSH [None]
  - MYALGIA [None]
  - OVERDOSE [None]
  - PAIN IN EXTREMITY [None]
  - PARAESTHESIA [None]
  - PERIPHERAL COLDNESS [None]
  - SUICIDAL IDEATION [None]
  - THROAT TIGHTNESS [None]
